FAERS Safety Report 21018278 (Version 1)
Quarter: 2022Q2

REPORT INFORMATION
  Report Type: Spontaneous
  Country: US (occurrence: None)
  Receive Date: 20220627
  Receipt Date: 20220627
  Transmission Date: 20220721
  Serious: Yes (Hospitalization)
  Sender: FDA-Public Use
  Company Number: None

PATIENT
  Sex: Male

DRUGS (2)
  1. SPRYCEL [Suspect]
     Active Substance: DASATINIB
  2. VITAMIN D3 LIQ [Concomitant]

REACTIONS (3)
  - Therapy interrupted [None]
  - Diarrhoea [None]
  - Surgery [None]
